FAERS Safety Report 15438728 (Version 3)
Quarter: 2018Q4

REPORT INFORMATION
  Report Type: Spontaneous
  Country: CZ (occurrence: CZ)
  Receive Date: 20180928
  Receipt Date: 20181125
  Transmission Date: 20190204
  Serious: Yes (Hospitalization, Other)
  Sender: FDA-Public Use
  Company Number: CZ-AMGEN-CZESP2018134294

PATIENT
  Age: 50 Year
  Sex: Male

DRUGS (9)
  1. ENBREL [Suspect]
     Active Substance: ETANERCEPT
     Dosage: UNK
     Route: 065
     Dates: end: 20180411
  2. SULFASALAZINE. [Concomitant]
     Active Substance: SULFASALAZINE
     Indication: UVEITIS
     Dosage: UNK
  3. ENBREL [Suspect]
     Active Substance: ETANERCEPT
     Dosage: 50 MG, EVERY 2 WEEKS
     Route: 058
     Dates: start: 20170607, end: 20180328
  4. STADAMET [Concomitant]
     Active Substance: METFORMIN HYDROCHLORIDE
     Indication: TYPE 2 DIABETES MELLITUS
     Dosage: 500 MG, 2X/DAY, ONE IN THE MORNING AND ONE IN THE EVENING
  5. ENBREL [Suspect]
     Active Substance: ETANERCEPT
     Indication: ANKYLOSING SPONDYLITIS
     Dosage: UNK, WEEKLY
     Route: 058
     Dates: start: 20120530, end: 20170525
  6. NSA [Concomitant]
     Active Substance: UNSPECIFIED INGREDIENT
     Dosage: UNK
  7. ORAMELLOX [Concomitant]
     Dosage: UNK
  8. SALAZOPYRINE [Concomitant]
     Active Substance: SULFASALAZINE
     Indication: UVEITIS
     Dosage: 2 DF, 2X/DAY
  9. TRIPLIXAM [Concomitant]
     Active Substance: AMLODIPINE BESYLATE\INDAPAMIDE\PERINDOPRIL ARGININE
     Indication: HYPERTENSION
     Dosage: 1 DF, 2X/DAY (10MG/2.5MG/10MG)

REACTIONS (3)
  - Lymphadenopathy [Unknown]
  - Pyrexia [Unknown]
  - Oropharyngeal squamous cell carcinoma [Unknown]

NARRATIVE: CASE EVENT DATE: 20180404
